FAERS Safety Report 9950098 (Version 1)
Quarter: 2014Q1

REPORT INFORMATION
  Report Type: Report from Study
  Country: US (occurrence: US)
  Receive Date: 20140304
  Receipt Date: 20140304
  Transmission Date: 20141002
  Serious: No
  Sender: FDA-Public Use
  Company Number: US-ABBVIE-13P-163-1069989-00

PATIENT
  Age: 47 Year
  Sex: Female

DRUGS (13)
  1. HUMIRA [Suspect]
     Indication: CROHN^S DISEASE
     Route: 058
     Dates: start: 20120917
  2. ASACOL [Concomitant]
     Indication: CROHN^S DISEASE
     Dosage: 800 MG, 5 TABS PER DAY
  3. CALCIUM [Concomitant]
     Indication: PRODUCT USED FOR UNKNOWN INDICATION
  4. VITAMIN D [Concomitant]
     Indication: PRODUCT USED FOR UNKNOWN INDICATION
  5. LISINOPRIL/HCTZ [Concomitant]
     Indication: DIURETIC THERAPY
     Dosage: 20/12.5 MG
  6. LISINOPRIL/HCTZ [Concomitant]
     Indication: BLOOD PRESSURE ABNORMAL
  7. LISINOPRIL [Concomitant]
     Indication: BLOOD PRESSURE ABNORMAL
  8. FOLIC ACID [Concomitant]
     Indication: PRODUCT USED FOR UNKNOWN INDICATION
  9. RANITIDINE [Concomitant]
     Indication: GASTROINTESTINAL DISORDER
  10. SIMVASTATIN [Concomitant]
     Indication: BLOOD CHOLESTEROL
  11. GLIPIZIDE [Concomitant]
     Indication: DIABETES MELLITUS
  12. METFORMIN [Concomitant]
     Indication: DIABETES MELLITUS
  13. OMEPRAZOLE [Concomitant]
     Indication: GASTROINTESTINAL DISORDER

REACTIONS (1)
  - Injection site bruising [Recovered/Resolved]
